FAERS Safety Report 14319846 (Version 1)
Quarter: 2017Q4

REPORT INFORMATION
  Report Type: Spontaneous
  Country: US (occurrence: US)
  Receive Date: 20171221
  Receipt Date: 20171221
  Transmission Date: 20180321
  Serious: No
  Sender: FDA-Public Use
  Company Number: None

PATIENT
  Age: 41 Year
  Sex: Female

DRUGS (1)
  1. LETAIRIS [Suspect]
     Active Substance: AMBRISENTAN
     Indication: SCLERODERMA
     Route: 048
     Dates: start: 20171126

REACTIONS (4)
  - Chills [None]
  - Upper respiratory tract infection [None]
  - Secretion discharge [None]
  - Myalgia [None]

NARRATIVE: CASE EVENT DATE: 20171207
